FAERS Safety Report 20419501 (Version 2)
Quarter: 2022Q1

REPORT INFORMATION
  Report Type: Spontaneous
  Country: SE (occurrence: SE)
  Receive Date: 20220203
  Receipt Date: 20220217
  Transmission Date: 20220423
  Serious: Yes (Other)
  Sender: FDA-Public Use
  Company Number: SE-AMGEN-SWESP2022013017

PATIENT
  Age: 87 Year
  Sex: Female

DRUGS (4)
  1. PROLIA [Suspect]
     Active Substance: DENOSUMAB
     Indication: Osteoporosis
     Dosage: UNK, Q6MO
     Route: 065
     Dates: start: 2018
  2. BETOLVEX [CYANOCOBALAMIN-TANNIN COMPLEX] [Concomitant]
     Dosage: UNK
     Route: 065
  3. FOLIC ACID [Concomitant]
     Active Substance: FOLIC ACID
     Dosage: UNK
     Route: 065
  4. CALCIUM CARBONATE\CHOLECALCIFEROL [Concomitant]
     Active Substance: CALCIUM CARBONATE\CHOLECALCIFEROL
     Dosage: UNK
     Route: 065

REACTIONS (13)
  - Ulcer haemorrhage [Unknown]
  - Rash erythematous [Not Recovered/Not Resolved]
  - Abscess limb [Not Recovered/Not Resolved]
  - Peripheral swelling [Unknown]
  - Injection site bruising [Unknown]
  - Injection site swelling [Unknown]
  - Skin wound [Unknown]
  - Urinary incontinence [Unknown]
  - Pain in jaw [Unknown]
  - Product administered by wrong person [Unknown]
  - Dyspnoea [Unknown]
  - Pruritus [Unknown]
  - Constipation [Unknown]

NARRATIVE: CASE EVENT DATE: 20180101
